FAERS Safety Report 16030654 (Version 1)
Quarter: 2019Q2

REPORT INFORMATION
  Report Type: Spontaneous
  Country: US (occurrence: US)
  Receive Date: 20190304
  Receipt Date: 20190304
  Transmission Date: 20190711
  Serious: Yes (Disabling)
  Sender: FDA-Public Use
  Company Number: None

PATIENT
  Age: 42 Year
  Sex: Female
  Weight: 72 kg

DRUGS (1)
  1. LEVAQUIN [Suspect]
     Active Substance: LEVOFLOXACIN
     Indication: PNEUMONIA
     Dosage: ?          QUANTITY:1 TABLET(S);?
     Route: 048
     Dates: start: 20180408, end: 20180410

REACTIONS (12)
  - Muscular weakness [None]
  - Burning sensation [None]
  - Pruritus [None]
  - Fall [None]
  - Neuropathy peripheral [None]
  - Fatigue [None]
  - Depression [None]
  - Tendonitis [None]
  - Tendon pain [None]
  - Arthralgia [None]
  - Hypoaesthesia [None]
  - Paraesthesia [None]

NARRATIVE: CASE EVENT DATE: 20180410
